FAERS Safety Report 7631231-5 (Version None)
Quarter: 2011Q3

REPORT INFORMATION
  Report Type: 
  Country: None (occurrence: None)
  Receive Date: 20110725
  Receipt Date: 20110713
  Transmission Date: 20111222
  Serious: Yes (Hospitalization)
  Sender: FDA-Public Use
  Company Number: FR-JNJFOC-20110608025

PATIENT
  Sex: Male

DRUGS (11)
  1. BACTRIM DS [Suspect]
     Indication: PRODUCT USED FOR UNKNOWN INDICATION
     Route: 048
     Dates: start: 20110505, end: 20110513
  2. NORVIR [Suspect]
     Route: 048
     Dates: start: 20110509, end: 20110516
  3. PREZISTA [Suspect]
     Indication: ACQUIRED IMMUNODEFICIENCY SYNDROME
     Route: 048
     Dates: start: 20110527, end: 20110605
  4. NORVIR [Suspect]
     Route: 048
     Dates: start: 20110527, end: 20110605
  5. PYRIMETHAMINE TAB [Suspect]
     Indication: PRODUCT USED FOR UNKNOWN INDICATION
     Route: 048
     Dates: start: 20110520, end: 20110601
  6. NORVIR [Suspect]
     Indication: ACQUIRED IMMUNODEFICIENCY SYNDROME
     Route: 048
     Dates: start: 20110610
  7. TRUVADA [Suspect]
     Indication: ACQUIRED IMMUNODEFICIENCY SYNDROME
     Route: 048
     Dates: start: 20110610
  8. PREZISTA [Suspect]
     Route: 048
     Dates: start: 20110505, end: 20110516
  9. PREZISTA [Suspect]
     Route: 048
     Dates: start: 20110610
  10. TRUVADA [Suspect]
     Route: 048
     Dates: start: 20110527, end: 20110605
  11. TRUVADA [Suspect]
     Route: 048
     Dates: start: 20110509, end: 20110516

REACTIONS (4)
  - MUCOSAL INFLAMMATION [None]
  - NEUTROPENIA [None]
  - THROMBOCYTOPENIA [None]
  - RASH [None]
